FAERS Safety Report 6453421-X (Version None)
Quarter: 2009Q4

REPORT INFORMATION
  Report Type: 
  Country: None (occurrence: None)
  Receive Date: 20091124
  Receipt Date: 20090305
  Transmission Date: 20100525
  Serious: No
  Sender: FDA-Public Use
  Company Number: US-AMGEN-COG337141

PATIENT
  Sex: Male

DRUGS (1)
  1. ENBREL [Suspect]
     Indication: RHEUMATOID ARTHRITIS
     Dates: start: 20031101

REACTIONS (3)
  - INJECTION SITE HAEMORRHAGE [None]
  - LUNG INFECTION [None]
  - THERAPEUTIC RESPONSE DECREASED [None]
